FAERS Safety Report 21269115 (Version 1)
Quarter: 2022Q3

REPORT INFORMATION
  Report Type: Spontaneous
  Country: US (occurrence: US)
  Receive Date: 20220830
  Receipt Date: 20220830
  Transmission Date: 20221026
  Serious: No
  Sender: FDA-Public Use
  Company Number: US-JNJFOC-20220852230

PATIENT
  Age: 43 Year
  Sex: Male
  Weight: 78 kg

DRUGS (1)
  1. STELARA [Suspect]
     Active Substance: USTEKINUMAB
     Indication: Colitis ulcerative
     Route: 040

REACTIONS (4)
  - Wrong technique in product usage process [Unknown]
  - Underdose [Unknown]
  - Injection site extravasation [Unknown]
  - Complication associated with device [Unknown]

NARRATIVE: CASE EVENT DATE: 20220815
